FAERS Safety Report 14557901 (Version 1)
Quarter: 2018Q1

REPORT INFORMATION
  Report Type: Spontaneous
  Country: US (occurrence: US)
  Receive Date: 20180221
  Receipt Date: 20180221
  Transmission Date: 20180509
  Serious: Yes (Other)
  Sender: FDA-Public Use
  Company Number: PHHY2018US021368

PATIENT
  Age: 83 Year
  Sex: Female

DRUGS (1)
  1. VANCOMYCIN [Suspect]
     Active Substance: VANCOMYCIN
     Indication: STAPHYLOCOCCAL INFECTION
     Dosage: 15 MG/KG, Q12H
     Route: 042

REACTIONS (3)
  - Kounis syndrome [Unknown]
  - Respiratory failure [Recovering/Resolving]
  - Unresponsive to stimuli [Recovering/Resolving]
